FAERS Safety Report 5599495-X (Version None)
Quarter: 2008Q1

REPORT INFORMATION
  Report Type: 
  Country: None (occurrence: None)
  Receive Date: 20080123
  Receipt Date: 20080122
  Transmission Date: 20080703
  Serious: Yes (Hospitalization)
  Sender: FDA-Public Use
  Company Number: CA-JNJFOC-20071105025

PATIENT
  Age: 57 Year
  Sex: Male
  Weight: 122 kg

DRUGS (11)
  1. REMICADE [Suspect]
     Route: 042
  2. REMICADE [Suspect]
     Indication: DRUG USE FOR UNKNOWN INDICATION
     Route: 042
  3. ANTIBIOTICS [Concomitant]
     Indication: ANAL ABSCESS
  4. MTX [Concomitant]
  5. FOLIC ACID [Concomitant]
  6. ADVIL LIQUI-GELS [Concomitant]
  7. PURINETHOL [Concomitant]
  8. ALTACE [Concomitant]
  9. PREDNISONE TAB [Concomitant]
  10. NPH ILETIN II [Concomitant]
  11. NOVO-RAPID [Concomitant]

REACTIONS (2)
  - ANAL ABSCESS [None]
  - ANAL FISTULA [None]
